FAERS Safety Report 14583837 (Version 1)
Quarter: 2018Q1

REPORT INFORMATION
  Report Type: Spontaneous
  Country: US (occurrence: US)
  Receive Date: 20180228
  Receipt Date: 20180228
  Transmission Date: 20180509
  Serious: No
  Sender: FDA-Public Use
  Company Number: US-INCYTE CORPORATION-2018IN001773

PATIENT

DRUGS (5)
  1. LEVOFLOXACIN. [Concomitant]
     Active Substance: LEVOFLOXACIN
     Indication: PRODUCT USED FOR UNKNOWN INDICATION
  2. FUROSEMIDE. [Concomitant]
     Active Substance: FUROSEMIDE
     Indication: BLOOD DISORDER
     Dosage: 20 MG, UNK
  3. KLOR-CON- 10 ER [Concomitant]
     Indication: PRODUCT USED FOR UNKNOWN INDICATION
  4. JAKAFI [Suspect]
     Active Substance: RUXOLITINIB
     Indication: MINERAL METABOLISM DISORDER
     Dosage: 10 MG, BID
     Route: 048
  5. FUROSEMIDE. [Concomitant]
     Active Substance: FUROSEMIDE
     Dosage: 40 MG, UNK

REACTIONS (1)
  - Off label use [Unknown]
